FAERS Safety Report 6491740-1 (Version None)
Quarter: 2009Q4

REPORT INFORMATION
  Report Type: 
  Country: None (occurrence: None)
  Receive Date: 20091208
  Receipt Date: 20091124
  Transmission Date: 20100525
  Serious: Yes (Other)
  Sender: FDA-Public Use
  Company Number: 1000010410

PATIENT
  Sex: Male

DRUGS (1)
  1. ESCITALOPRAM       ORAL [Suspect]
     Dosage: (3 GITT), ORAL
     Route: 048

REACTIONS (2)
  - CHROMATOPSIA [None]
  - MANIA [None]
